FAERS Safety Report 16508565 (Version 3)
Quarter: 2020Q1

REPORT INFORMATION
  Report Type: Spontaneous
  Country: PT (occurrence: PT)
  Receive Date: 20190701
  Receipt Date: 20200106
  Transmission Date: 20200409
  Serious: Yes (Death, Other)
  Sender: FDA-Public Use
  Company Number: PT-MYLANLABS-2019M1059349

PATIENT
  Age: 53 Year
  Weight: 55 kg

DRUGS (2)
  1. TRASTUZUMAB. [Suspect]
     Active Substance: TRASTUZUMAB
     Indication: BREAST CANCER METASTATIC
     Dosage: 330 MILLIGRAM, Q21D (330MG IV 21 EM 21 DIAS)
     Route: 042
     Dates: start: 20170224, end: 20181205
  2. PEMBROLIZUMAB. [Suspect]
     Active Substance: PEMBROLIZUMAB
     Indication: BREAST CANCER METASTATIC
     Dosage: 420 MILLIGRAM, Q21D (420MG IV DE 21 EM 21 DIAS)
     Route: 042
     Dates: start: 20170224, end: 20181205

REACTIONS (1)
  - Adenocarcinoma [Fatal]

NARRATIVE: CASE EVENT DATE: 20181114
